FAERS Safety Report 8311086-6 (Version None)
Quarter: 2012Q2

REPORT INFORMATION
  Report Type: 
  Country: None (occurrence: None)
  Receive Date: 20120425
  Receipt Date: 20120417
  Transmission Date: 20120825
  Serious: No
  Sender: FDA-Public Use
  Company Number: US-BIOGENIDEC-2012BI014063

PATIENT
  Sex: Female

DRUGS (1)
  1. TYSABRI [Suspect]
     Indication: MULTIPLE SCLEROSIS
     Route: 042
     Dates: start: 20090422

REACTIONS (12)
  - TOOTH EXTRACTION [None]
  - FIBROMYALGIA [None]
  - PAIN IN EXTREMITY [None]
  - ADVERSE DRUG REACTION [None]
  - MALAISE [None]
  - HYPOAESTHESIA [None]
  - ARTHRALGIA [None]
  - GAIT DISTURBANCE [None]
  - POOR VENOUS ACCESS [None]
  - GINGIVAL DISORDER [None]
  - PARAESTHESIA [None]
  - INFUSION SITE PAIN [None]
